FAERS Safety Report 20221030 (Version 1)
Quarter: 2021Q4

REPORT INFORMATION
  Report Type: Spontaneous
  Country: US (occurrence: US)
  Receive Date: 20211223
  Receipt Date: 20211223
  Transmission Date: 20220303
  Serious: Yes (Death, Other)
  Sender: FDA-Public Use
  Company Number: US-GILEAD-2021-0560776

PATIENT
  Sex: Male

DRUGS (1)
  1. VEKLURY [Suspect]
     Active Substance: REMDESIVIR
     Indication: Product used for unknown indication
     Dosage: 2 ROUNDS OF AN UNKNOWN DOSAGE FOR FIVE DAYS EACH TIME
     Route: 065
     Dates: start: 202108, end: 202109

REACTIONS (4)
  - Pulmonary embolism [Fatal]
  - Peripheral swelling [Not Recovered/Not Resolved]
  - Recalled product administered [Recovered/Resolved]
  - Recalled product [Recovered/Resolved]

NARRATIVE: CASE EVENT DATE: 20210801
